FAERS Safety Report 9088182 (Version 1)
Quarter: 2013Q1

REPORT INFORMATION
  Report Type: Report from Study
  Country: US (occurrence: US)
  Receive Date: 20130130
  Receipt Date: 20130130
  Transmission Date: 20140127
  Serious: No
  Sender: FDA-Public Use
  Company Number: US-ABBOTT-12P-163-0983813-00

PATIENT
  Sex: Female
  Weight: 113.95 kg

DRUGS (11)
  1. MINOCYCLINE [Concomitant]
     Indication: SKIN DISORDER
  2. METFORMIN [Concomitant]
     Indication: DIABETES MELLITUS
  3. PRAVASTATIN [Concomitant]
     Indication: BLOOD CHOLESTEROL INCREASED
  4. TRAZODONE [Concomitant]
     Indication: DEPRESSION
  5. RISPERDAL [Concomitant]
     Indication: DEPRESSION
  6. TRAMADOL [Concomitant]
     Indication: PAIN
  7. HUMIRA [Suspect]
     Indication: ARTHRITIS
     Route: 058
     Dates: start: 20120911
  8. CELEXA [Concomitant]
     Indication: DEPRESSION
  9. SYNTHROID [Concomitant]
     Indication: THYROID DISORDER
  10. TOPROL [Concomitant]
     Indication: HYPERTENSION
  11. OMEPRAZOLE [Concomitant]
     Indication: GASTROOESOPHAGEAL REFLUX DISEASE

REACTIONS (1)
  - Off label use [Not Recovered/Not Resolved]
